FAERS Safety Report 4682010-2 (Version None)
Quarter: 2005Q2

REPORT INFORMATION
  Report Type: 
  Country: None (occurrence: None)
  Receive Date: 20050606
  Receipt Date: 20050524
  Transmission Date: 20051028
  Serious: Yes (Other)
  Sender: FDA-Public Use
  Company Number: RO-JNJFOC-20050507440

PATIENT

DRUGS (2)
  1. INFLIXIMAB [Suspect]
     Indication: RHEUMATOID ARTHRITIS
     Dosage: STANDARD SCHEDULE
     Route: 042
  2. METHOTREXATE [Concomitant]
     Dosage: 15- 20 MG/WEEK

REACTIONS (1)
  - PULMONARY TUBERCULOSIS [None]
